FAERS Safety Report 5566700-5 (Version None)
Quarter: 2007Q4

REPORT INFORMATION
  Report Type: 
  Country: None (occurrence: None)
  Receive Date: 20071219
  Receipt Date: 20071207
  Transmission Date: 20080405
  Serious: Yes (Other)
  Sender: FDA-Public Use
  Company Number: JP-MERCK-0711USA01143

PATIENT
  Age: 10 Year
  Sex: Male
  Weight: 27 kg

DRUGS (2)
  1. SINGULAIR [Suspect]
     Indication: RHINITIS ALLERGIC
     Route: 048
     Dates: start: 20071009, end: 20071011
  2. PEMILASTON [Suspect]
     Indication: RHINITIS ALLERGIC
     Route: 048
     Dates: start: 20071009, end: 20071011

REACTIONS (1)
  - ASTHMA [None]
